FAERS Safety Report 4551058-0 (Version None)
Quarter: 2005Q1

REPORT INFORMATION
  Report Type: 
  Country: None (occurrence: None)
  Receive Date: 20050113
  Receipt Date: 20041124
  Transmission Date: 20050727
  Serious: No
  Sender: FDA-Public Use
  Company Number: US-BRISTOL-MYERS SQUIBB COMPANY-12778346

PATIENT
  Sex: Male

DRUGS (4)
  1. TRAZODONE HCL [Suspect]
     Indication: INSOMNIA
     Dosage: INITIATED THERAPY ^ABOUT 6 WEEKS AGO^
     Route: 048
     Dates: start: 20040101
  2. TOPROL-XL [Concomitant]
  3. LISINOPRIL [Concomitant]
  4. VALERIAN [Concomitant]

REACTIONS (2)
  - HYPOAESTHESIA [None]
  - TACHYCARDIA [None]
